FAERS Safety Report 25358325 (Version 1)
Quarter: 2025Q2

REPORT INFORMATION
  Report Type: Report from Study
  Country: US (occurrence: US)
  Receive Date: 20250526
  Receipt Date: 20250526
  Transmission Date: 20250716
  Serious: No
  Sender: MALLINCKRODT
  Company Number: US-MALLINCKRODT-MNK202500815

PATIENT
  Sex: Female

DRUGS (2)
  1. CORTICOTROPIN [Suspect]
     Active Substance: CORTICOTROPIN
     Indication: Keratitis
  2. OCUVITE [Concomitant]
     Active Substance: VITAMINS

REACTIONS (4)
  - Corneal laceration [Not Recovered/Not Resolved]
  - Eye pain [Not Recovered/Not Resolved]
  - Impaired healing [Unknown]
  - Therapeutic product effect incomplete [Unknown]
